FAERS Safety Report 5689711-8 (Version None)
Quarter: 2008Q1

REPORT INFORMATION
  Report Type: 
  Country: None (occurrence: None)
  Receive Date: 20080328
  Receipt Date: 20080325
  Transmission Date: 20080703
  Serious: Yes (Death, Disabling, Other)
  Sender: FDA-Public Use
  Company Number: 2008-01004

PATIENT
  Age: 56 Year
  Sex: Male
  Weight: 62 kg

DRUGS (18)
  1. VELCADE [Suspect]
     Indication: MULTIPLE MYELOMA
     Dosage: 1.90 MG, INTRAVENOUS
     Route: 042
     Dates: start: 20070529, end: 20070608
  2. SENNOSIDE [Concomitant]
  3. ACYCLOVIR [Concomitant]
  4. ITRACONAZOLE [Concomitant]
  5. SULFAMETHOXAZOLE AND TRIMETHOPRIM [Concomitant]
  6. PANTOSIN (PANTETHINE) [Concomitant]
  7. MAGNESIUM OXIDE (MAGNESIUM OXIDE) [Concomitant]
  8. FENTANYL [Concomitant]
  9. LAMIVUDINE [Concomitant]
  10. ENTECAVIR HYDRATE [Concomitant]
  11. ZOLPIDEM TARTRATE [Concomitant]
  12. BIOFERMIN R (STREPTOCOCCUS FAECALIS) [Concomitant]
  13. LANSOPRAZOLE [Concomitant]
  14. MAXIPIME (CEFEPIME HYDRCHLORIDE) [Concomitant]
  15. NOVAMIN (PROCHLORPERAZINE) [Concomitant]
  16. NEO-MINOPHGEN C (GLYCYRRHIZIC ACID, AMMONIUM SALT) [Concomitant]
  17. RED BLOOD CELLS [Concomitant]
  18. GRAN [Concomitant]

REACTIONS (14)
  - ABDOMINAL DISTENSION [None]
  - ALANINE AMINOTRANSFERASE INCREASED [None]
  - ASPARTATE AMINOTRANSFERASE INCREASED [None]
  - BLOOD LACTATE DEHYDROGENASE INCREASED [None]
  - DIARRHOEA [None]
  - HYPOAESTHESIA [None]
  - MUSCULAR WEAKNESS [None]
  - NEUTROPHIL COUNT DECREASED [None]
  - PAIN [None]
  - PLASMACYTOMA [None]
  - PLATELET COUNT DECREASED [None]
  - PYREXIA [None]
  - TUMOUR LYSIS SYNDROME [None]
  - WHITE BLOOD CELL COUNT DECREASED [None]
